FAERS Safety Report 20736570 (Version 2)
Quarter: 2022Q3

REPORT INFORMATION
  Report Type: Spontaneous
  Country: JP (occurrence: JP)
  Receive Date: 20220421
  Receipt Date: 20220722
  Transmission Date: 20221027
  Serious: Yes (Death, Other)
  Sender: FDA-Public Use
  Company Number: JP-BRISTOL-MYERS SQUIBB COMPANY-2022-022177

PATIENT
  Age: 84 Year
  Sex: Female
  Weight: 44.8 kg

DRUGS (12)
  1. YERVOY [Suspect]
     Active Substance: IPILIMUMAB
     Indication: Lung neoplasm malignant
     Route: 041
     Dates: start: 20220404, end: 20220404
  2. OPDIVO [Suspect]
     Active Substance: NIVOLUMAB
     Indication: Lung neoplasm malignant
     Route: 041
     Dates: start: 20220404, end: 20220404
  3. CARBOPLATIN [Concomitant]
     Active Substance: CARBOPLATIN
     Indication: Lung neoplasm malignant
     Route: 065
     Dates: start: 20220404, end: 20220404
  4. PACLITAXEL [Concomitant]
     Active Substance: PACLITAXEL
     Indication: Lung neoplasm malignant
     Route: 065
     Dates: start: 20220404, end: 20220404
  5. LANSOPRAZOLE [Concomitant]
     Active Substance: LANSOPRAZOLE
     Indication: Product used for unknown indication
     Route: 048
     Dates: start: 20220401, end: 20220409
  6. LINAGLIPTIN [Concomitant]
     Active Substance: LINAGLIPTIN
     Indication: Product used for unknown indication
     Route: 048
     Dates: start: 20220404, end: 20220409
  7. JARDIANCE [Concomitant]
     Active Substance: EMPAGLIFLOZIN
     Indication: Product used for unknown indication
     Route: 048
     Dates: start: 20220403, end: 20220407
  8. METFORMINHYDROCHLORID [Concomitant]
     Indication: Product used for unknown indication
     Route: 048
     Dates: start: 20220403, end: 20220407
  9. PRIMPERAN [Concomitant]
     Active Substance: METOCLOPRAMIDE HYDROCHLORIDE
     Indication: Product used for unknown indication
     Route: 048
     Dates: start: 20220406, end: 20220409
  10. KYTRIL [Concomitant]
     Active Substance: GRANISETRON HYDROCHLORIDE
     Indication: Product used for unknown indication
     Route: 048
     Dates: start: 20220408, end: 20220409
  11. BIOFERMlN-R [Concomitant]
     Indication: Product used for unknown indication
     Route: 048
     Dates: start: 20220408, end: 20220409
  12. CEFEPIME [Concomitant]
     Active Substance: CEFEPIME HYDROCHLORIDE
     Indication: Prophylaxis
     Route: 050
     Dates: start: 20220408, end: 20220410

REACTIONS (11)
  - Hepatic function abnormal [Fatal]
  - Altered state of consciousness [Unknown]
  - Abdominal pain [Unknown]
  - Tumour lysis syndrome [Unknown]
  - Hyperkalaemia [Fatal]
  - Blood creatinine increased [Unknown]
  - Acidosis [Fatal]
  - Nausea [Unknown]
  - Dyspnoea [Unknown]
  - Cardiac dysfunction [Unknown]
  - Multiple organ dysfunction syndrome [Unknown]

NARRATIVE: CASE EVENT DATE: 20220406
